FAERS Safety Report 9399224 (Version 1)
Quarter: 2013Q3

REPORT INFORMATION
  Report Type: Spontaneous
  Country: MX (occurrence: None)
  Receive Date: 20130709
  Receipt Date: 20130709
  Transmission Date: 20140515
  Serious: Yes (Other)
  Sender: FDA-Public Use
  Company Number: 2013/140

PATIENT
  Age: 80 Year
  Sex: Female

DRUGS (4)
  1. AMLODIPINE [Suspect]
     Indication: HYPERTENSION
     Dates: start: 2006, end: 201211
  2. TOPICAL AND SYSTEMIC STEROIDS (DETAILS NOT SPECIFIED) [Concomitant]
  3. DRYING CREAMS (DETAILS NOT SPECIFIED) [Concomitant]
  4. EMOLLIENTS (DETAILS NOT SPECIFIED) [Concomitant]

REACTIONS (1)
  - Toxic skin eruption [None]
